FAERS Safety Report 8800599 (Version 2)
Quarter: 2012Q4

REPORT INFORMATION
  Report Type: 
  Country: NL (occurrence: NL)
  Receive Date: 20120921
  Receipt Date: 20121228
  Transmission Date: 20130627
  Serious: No
  Sender: FDA-Public Use
  Company Number: NL-AMGEN-NLDSP2012059264

PATIENT
  Age: 48 Year
  Sex: Female

DRUGS (3)
  1. ENBREL [Suspect]
     Indication: PSORIATIC ARTHROPATHY
     Dosage: 50 mg, 2x/week
     Route: 065
     Dates: start: 20101026
  2. BRUFEN                             /00109201/ [Concomitant]
     Dosage: UNK
  3. PCM [Concomitant]
     Dosage: UNK

REACTIONS (1)
  - Drug ineffective [Unknown]
